FAERS Safety Report 5744715-1 (Version None)
Quarter: 2008Q2

REPORT INFORMATION
  Report Type: 
  Country: None (occurrence: None)
  Receive Date: 20080520
  Receipt Date: 20080513
  Transmission Date: 20081010
  Serious: No
  Sender: FDA-Public Use
  Company Number: US-BAXTER-2008BH004570

PATIENT
  Age: 60 Year
  Sex: Female
  Weight: 81 kg

DRUGS (6)
  1. HEPARIN SODIUM [Suspect]
     Indication: IRON OVERLOAD
     Dosage: DOSE UNIT:UNKNOWN
     Route: 060
     Dates: start: 20070801, end: 20080430
  2. HEPARIN SODIUM [Suspect]
     Indication: BLOOD DISORDER
     Dosage: DOSE UNIT:UNKNOWN
     Route: 060
     Dates: start: 20070801, end: 20080430
  3. HEPARIN SODIUM [Suspect]
     Indication: OFF LABEL USE
     Dosage: DOSE UNIT:UNKNOWN
     Route: 060
     Dates: start: 20070801, end: 20080430
  4. THYROID TAB [Concomitant]
     Indication: DRUG USE FOR UNKNOWN INDICATION
     Dosage: DOSE UNIT:UNKNOWN
     Route: 065
  5. BENICAR HCT [Concomitant]
     Indication: DRUG USE FOR UNKNOWN INDICATION
     Dosage: DOSE UNIT:UNKNOWN
     Route: 065
  6. ZESTRIL [Concomitant]
     Indication: DRUG USE FOR UNKNOWN INDICATION
     Route: 065

REACTIONS (3)
  - BURNING SENSATION [None]
  - PAIN IN EXTREMITY [None]
  - SENSATION OF HEAVINESS [None]
